FAERS Safety Report 12306305 (Version 2)
Quarter: 2016Q2

REPORT INFORMATION
  Report Type: Spontaneous
  Country: DE (occurrence: DE)
  Receive Date: 20160426
  Receipt Date: 20160503
  Transmission Date: 20160815
  Serious: Yes (Other)
  Sender: FDA-Public Use
  Company Number: DE-JNJFOC-20160421914

PATIENT
  Age: 6 Decade
  Sex: Female
  Weight: 85 kg

DRUGS (4)
  1. EBASTEL [Concomitant]
     Active Substance: EBASTINE
     Indication: PSORIASIS
     Route: 065
  2. HUMIRA [Concomitant]
     Active Substance: ADALIMUMAB
     Route: 065
     Dates: start: 201503
  3. AVAMYS [Concomitant]
     Active Substance: FLUTICASONE FUROATE
     Indication: PSORIASIS
     Route: 065
  4. SIMPONI [Suspect]
     Active Substance: GOLIMUMAB
     Indication: PSORIATIC ARTHROPATHY
     Route: 058
     Dates: start: 201503

REACTIONS (3)
  - Clavicle fracture [Recovering/Resolving]
  - Road traffic accident [Recovering/Resolving]
  - Stress fracture [Recovering/Resolving]

NARRATIVE: CASE EVENT DATE: 201507
